FAERS Safety Report 24787252 (Version 1)
Quarter: 2024Q4

REPORT INFORMATION
  Report Type: Report from Study
  Country: CA (occurrence: CA)
  Receive Date: 20241230
  Receipt Date: 20241230
  Transmission Date: 20250114
  Serious: Yes (Other)
  Sender: SAMSUNG BIOEPIS
  Company Number: CA-SAMSUNG BIOEPIS-SB-2024-39184

PATIENT
  Age: 31 Year
  Sex: Male

DRUGS (2)
  1. RENFLEXIS [Suspect]
     Active Substance: INFLIXIMAB-ABDA
     Indication: Ankylosing spondylitis
     Route: 042
     Dates: start: 20240109
  2. RENFLEXIS [Suspect]
     Active Substance: INFLIXIMAB-ABDA
     Route: 042

REACTIONS (1)
  - Ankylosing spondylitis [Unknown]
